FAERS Safety Report 9245919 (Version 1)
Quarter: 2013Q2

REPORT INFORMATION
  Report Type: Spontaneous
  Country: GB (occurrence: GB)
  Receive Date: 20130422
  Receipt Date: 20130422
  Transmission Date: 20140414
  Serious: Yes (Other)
  Sender: FDA-Public Use
  Company Number: GB-PFIZER INC-2013001212

PATIENT
  Sex: Female

DRUGS (2)
  1. LYRICA [Suspect]
     Dosage: 50 MG, 3X/DAY
     Dates: start: 201212, end: 20130101
  2. LYRICA [Suspect]
     Dosage: 100 MG, 3X/DAY
     Dates: start: 20130102

REACTIONS (8)
  - Skin disorder [Unknown]
  - Impaired healing [Unknown]
  - Vertigo [Unknown]
  - Dizziness [Unknown]
  - Feeling abnormal [Unknown]
  - Disturbance in attention [Unknown]
  - Thinking abnormal [Unknown]
  - Increased appetite [Unknown]
